FAERS Safety Report 15849951 (Version 1)
Quarter: 2019Q1

REPORT INFORMATION
  Report Type: Spontaneous
  Country: US (occurrence: US)
  Receive Date: 20190121
  Receipt Date: 20190121
  Transmission Date: 20190417
  Serious: No
  Sender: FDA-Public Use
  Company Number: US-SA-2019SA011337

PATIENT
  Age: 42 Year
  Sex: Male

DRUGS (1)
  1. DUPIXENT [Suspect]
     Active Substance: DUPILUMAB
     Dosage: UNK MG
     Route: 058
     Dates: start: 201812

REACTIONS (3)
  - Stomatitis [Unknown]
  - Dry eye [Unknown]
  - Oral pain [Unknown]

NARRATIVE: CASE EVENT DATE: 20190109
